FAERS Safety Report 25978075 (Version 1)
Quarter: 2025Q4

REPORT INFORMATION
  Report Type: Spontaneous
  Country: EU (occurrence: EU)
  Receive Date: 20251030
  Receipt Date: 20251030
  Transmission Date: 20260118
  Serious: Yes (Other)
  Sender: ALEXION PHARMACEUTICALS
  Company Number: EU-AstraZeneca-CH-00978304A

PATIENT
  Age: 62 Year
  Sex: Female

DRUGS (1)
  1. LYNPARZA [Suspect]
     Active Substance: OLAPARIB
     Indication: Ovarian cancer
     Dosage: 200 MILLIGRAM, BID
     Route: 065
     Dates: start: 202502

REACTIONS (2)
  - Platelet count abnormal [Recovering/Resolving]
  - Neutrophil count abnormal [Recovering/Resolving]

NARRATIVE: CASE EVENT DATE: 20251010
